FAERS Safety Report 6589739 (Version 2)
Quarter: 2015Q4

REPORT INFORMATION
  Report Type: Spontaneous
  Country: AU (occurrence: AU)
  Receive Date: 20080320
  Receipt Date: 20151015
  Transmission Date: 20160305
  Serious: Yes (Other)
  Sender: FDA-Public Use
  Company Number: AU-PFIZER INC-2008024656

PATIENT
  Age: 48 Year
  Sex: Female

DRUGS (6)
  1. RISPERIDONE. [Concomitant]
     Active Substance: RISPERIDONE
     Dosage: 6 MG IN THE MORNING
  2. EFFEXOR [Concomitant]
     Active Substance: VENLAFAXINE HYDROCHLORIDE
     Dosage: 150 MG IN THE MORNING AND 75 MG IN THE NIGHT TIME
  3. CHAMPIX [Suspect]
     Active Substance: VARENICLINE TARTRATE
     Dosage: UNK
  4. MOGADON [Concomitant]
     Active Substance: NITRAZEPAM
     Dosage: 10 MG IN THE NIGHT TIME
  5. ABILIFY [Concomitant]
     Active Substance: ARIPIPRAZOLE
     Dosage: 30 MG IN THE NIGHT TIME AND 15 MG IN THE MORNING
  6. DIAZEPAM. [Concomitant]
     Active Substance: DIAZEPAM
     Dosage: 10 MG, AS NEEDED

REACTIONS (8)
  - Bedridden [Recovered/Resolved]
  - Fatigue [Recovered/Resolved]
  - Nausea [Recovered/Resolved]
  - Vertigo [Recovered/Resolved]
  - Emotional distress [Recovered/Resolved]
  - Mood swings [Recovered/Resolved]
  - Dizziness [Recovered/Resolved]
  - Malaise [Recovered/Resolved]
